FAERS Safety Report 8394879-9 (Version None)
Quarter: 2012Q2

REPORT INFORMATION
  Report Type: 
  Country: None (occurrence: None)
  Receive Date: 20120530
  Receipt Date: 20120518
  Transmission Date: 20120825
  Serious: Yes (Other)
  Sender: FDA-Public Use
  Company Number: US-ELI_LILLY_AND_COMPANY-US201205006603

PATIENT
  Sex: Female
  Weight: 113.38 kg

DRUGS (2)
  1. NAPROSYN                           /00256202/ [Concomitant]
     Indication: PAIN
     Dosage: UNK, PRN
  2. CYMBALTA [Suspect]
     Indication: FIBROMYALGIA
     Dosage: UNK

REACTIONS (4)
  - BRAIN INJURY [None]
  - GRAND MAL CONVULSION [None]
  - FIBROMYALGIA [None]
  - MEMORY IMPAIRMENT [None]
